FAERS Safety Report 20638423 (Version 1)
Quarter: 2022Q1

REPORT INFORMATION
  Report Type: Spontaneous
  Country: JP (occurrence: JP)
  Receive Date: 20220325
  Receipt Date: 20220325
  Transmission Date: 20220423
  Serious: Yes (Other)
  Sender: FDA-Public Use
  Company Number: 22_00017916 (0)

PATIENT

DRUGS (1)
  1. DEXMEDETOMIDINE HYDROCHLORIDE [Suspect]
     Active Substance: DEXMEDETOMIDINE HYDROCHLORIDE
     Indication: Sedative therapy
     Dosage: WITH C02 ANGIOGRAPHY IN ADDITION TO PREMEDICATION WITH STEROID
     Route: 042

REACTIONS (2)
  - Anaphylactic shock [Unknown]
  - Blood pressure decreased [Unknown]
